FAERS Safety Report 8487233-2 (Version None)
Quarter: 2012Q3

REPORT INFORMATION
  Report Type: 
  Country: None (occurrence: None)
  Receive Date: 20120705
  Receipt Date: 20120621
  Transmission Date: 20120928
  Serious: Yes (Other)
  Sender: FDA-Public Use
  Company Number: GR-AMGEN-GRCSP2012034044

PATIENT
  Sex: Female

DRUGS (2)
  1. ENBREL [Suspect]
     Indication: RHEUMATOID ARTHRITIS
     Dosage: 50 MG, UNK
  2. METHOTREXATE [Concomitant]
     Dosage: UNK

REACTIONS (3)
  - PAIN IN EXTREMITY [None]
  - RHEUMATOID ARTHRITIS [None]
  - GAIT DISTURBANCE [None]
